FAERS Safety Report 18090897 (Version 1)
Quarter: 2020Q3

REPORT INFORMATION
  Report Type: Spontaneous
  Country: US (occurrence: US)
  Receive Date: 20200729
  Receipt Date: 20200729
  Transmission Date: 20201103
  Serious: No
  Sender: FDA-Public Use
  Company Number: None

PATIENT
  Sex: Female
  Weight: 72.57 kg

DRUGS (1)
  1. OPDIVO [Suspect]
     Active Substance: NIVOLUMAB
     Indication: HEPATIC CANCER
     Dosage: ?          OTHER FREQUENCY:480MG MONTHLY ;?
     Route: 042
     Dates: start: 20190606

REACTIONS (7)
  - Pruritus [None]
  - Dizziness [None]
  - Peripheral swelling [None]
  - Pain [None]
  - Fatigue [None]
  - Abdominal pain upper [None]
  - Headache [None]
